FAERS Safety Report 14596644 (Version 3)
Quarter: 2018Q1

REPORT INFORMATION
  Report Type: Spontaneous
  Country: FR (occurrence: FR)
  Receive Date: 20180304
  Receipt Date: 20180331
  Transmission Date: 20180509
  Serious: Yes (Other)
  Sender: FDA-Public Use
  Company Number: FR-AUROBINDO-AUR-APL-2018-011130

PATIENT
  Age: 30 Year
  Sex: Male

DRUGS (8)
  1. METHYLPHENIDATE. [Suspect]
     Active Substance: METHYLPHENIDATE
     Dosage: 120 MG/DAY ()
     Route: 065
  2. MODAFINIL. [Suspect]
     Active Substance: MODAFINIL
     Indication: NARCOLEPSY
     Dosage: 600 MG/DAY ()
     Route: 065
  3. PITOLISANT [Concomitant]
     Active Substance: PITOLISANT
     Indication: NARCOLEPSY
     Dosage: 40 MG/DAY ()
     Route: 065
  4. PITOLISANT [Concomitant]
     Active Substance: PITOLISANT
     Dosage: 40 MG/DAY ()
     Route: 065
  5. METHYLPHENIDATE. [Suspect]
     Active Substance: METHYLPHENIDATE
     Indication: NARCOLEPSY
     Dosage: 120 MG/DAY ()
     Route: 065
  6. PITOLISANT [Concomitant]
     Active Substance: PITOLISANT
     Dosage: 40 MG/DAY ()
     Route: 065
  7. MODAFINIL. [Suspect]
     Active Substance: MODAFINIL
     Dosage: 600 MG, 1X/DAY:QD
     Route: 065
  8. MODAFINIL. [Suspect]
     Active Substance: MODAFINIL
     Dosage: 600 MG/DAY ()
     Route: 065

REACTIONS (4)
  - Hallucination, auditory [Unknown]
  - Psychotic symptom [Unknown]
  - Intentional product misuse [Unknown]
  - Schizotypal personality disorder [Unknown]
